FAERS Safety Report 6803964-1 (Version None)
Quarter: 2010Q2

REPORT INFORMATION
  Report Type: 
  Country: None (occurrence: None)
  Receive Date: 20100628
  Receipt Date: 20060609
  Transmission Date: 20101027
  Serious: No
  Sender: FDA-Public Use
  Company Number: US-PFIZER INC-2006075670

PATIENT
  Sex: Male
  Weight: 62.6 kg

DRUGS (6)
  1. SUTENT [Suspect]
     Indication: RENAL CELL CARCINOMA
     Route: 065
     Dates: start: 20060525
  2. SYNTHROID [Concomitant]
     Indication: HYPOTHYROIDISM
     Route: 065
  3. FLOMAX [Concomitant]
     Indication: PROSTATIC DISORDER
     Route: 065
  4. ARANESP [Concomitant]
     Indication: ANAEMIA
     Route: 065
  5. ZOMETA [Concomitant]
     Indication: BONE CANCER METASTATIC
     Route: 065
  6. MEGACE [Concomitant]
     Route: 065

REACTIONS (3)
  - DECREASED APPETITE [None]
  - DIARRHOEA [None]
  - VOMITING [None]
